FAERS Safety Report 12479640 (Version 5)
Quarter: 2017Q1

REPORT INFORMATION
  Report Type: Spontaneous
  Country: US (occurrence: US)
  Receive Date: 20160620
  Receipt Date: 20170329
  Transmission Date: 20170428
  Serious: Yes (Other)
  Sender: FDA-Public Use
  Company Number: US-PFIZER INC-2016285524

PATIENT
  Age: 76 Year
  Sex: Female
  Weight: 61 kg

DRUGS (2)
  1. IBRANCE [Suspect]
     Active Substance: PALBOCICLIB
     Indication: NEOPLASM MALIGNANT
     Dosage: 125 MG, UNK (TAKE 1 CAPSULE)
     Dates: start: 201604
  2. LETROZOLE. [Suspect]
     Active Substance: LETROZOLE
     Indication: NEOPLASM MALIGNANT
     Dosage: 2.5 MG, UNK (TAKE 1 CAPSULE)
     Dates: start: 201604

REACTIONS (12)
  - Dizziness [Unknown]
  - Skin cancer [Unknown]
  - Abdominal discomfort [Unknown]
  - Dry skin [Unknown]
  - Second primary malignancy [Unknown]
  - Musculoskeletal discomfort [Unknown]
  - Fatigue [Unknown]
  - Decreased appetite [Unknown]
  - Diarrhoea [Unknown]
  - Contusion [Unknown]
  - Epistaxis [Unknown]
  - Anaemia [Unknown]

NARRATIVE: CASE EVENT DATE: 201606
